FAERS Safety Report 25746548 (Version 1)
Quarter: 2025Q3

REPORT INFORMATION
  Report Type: Spontaneous
  Country: JP (occurrence: JP)
  Receive Date: 20250901
  Receipt Date: 20250901
  Transmission Date: 20251020
  Serious: Yes (Other)
  Sender: ORGANON
  Company Number: JP-ORGANON-O2508JPN002383

PATIENT
  Age: 88 Year
  Sex: Female

DRUGS (1)
  1. BONALON [Suspect]
     Active Substance: ALENDRONATE SODIUM
     Dosage: 35 MILLIGRAM PER WEEK
     Route: 048
     Dates: start: 201408

REACTIONS (3)
  - Osteomyelitis [Unknown]
  - Osteonecrosis of jaw [Unknown]
  - Cellulitis orbital [Unknown]
